FAERS Safety Report 16911754 (Version 1)
Quarter: 2019Q4

REPORT INFORMATION
  Report Type: Spontaneous
  Country: DE (occurrence: DE)
  Receive Date: 20191014
  Receipt Date: 20191014
  Transmission Date: 20200122
  Serious: Yes (Other)
  Sender: FDA-Public Use
  Company Number: DE-SA-2019SA274247

PATIENT
  Age: 72 Year
  Sex: Male

DRUGS (8)
  1. DOXORUBICIN [Concomitant]
     Active Substance: DOXORUBICIN
     Indication: COELIAC DISEASE
  2. CYCLOPHOSPHAMIDE. [Concomitant]
     Active Substance: CYCLOPHOSPHAMIDE
     Indication: COELIAC DISEASE
  3. CLADRIBINE. [Concomitant]
     Active Substance: CLADRIBINE
     Indication: COELIAC DISEASE
  4. ALEMTUZUMAB [Suspect]
     Active Substance: ALEMTUZUMAB
     Indication: COELIAC DISEASE
     Dosage: 10 MG
     Route: 058
  5. RITUXIMAB. [Concomitant]
     Active Substance: RITUXIMAB
     Indication: COELIAC DISEASE
  6. PREDNISONE. [Concomitant]
     Active Substance: PREDNISONE
     Indication: COELIAC DISEASE
  7. ALEMTUZUMAB [Suspect]
     Active Substance: ALEMTUZUMAB
     Dosage: 20 MG; TWICE WEEKLY
     Route: 058
  8. VINCRISTINE [Concomitant]
     Active Substance: VINCRISTINE
     Indication: COELIAC DISEASE

REACTIONS (3)
  - Off label use [Unknown]
  - Pancytopenia [Unknown]
  - Cytomegalovirus infection [Unknown]
